FAERS Safety Report 24264954 (Version 1)
Quarter: 2024Q3

REPORT INFORMATION
  Report Type: Spontaneous
  Country: IN (occurrence: IN)
  Receive Date: 20240829
  Receipt Date: 20240829
  Transmission Date: 20241017
  Serious: Yes (Other)
  Sender: PFIZER
  Company Number: IN-PFIZER INC-PV202400112759

PATIENT
  Age: 23 Year
  Sex: Female

DRUGS (1)
  1. ABROCITINIB [Suspect]
     Active Substance: ABROCITINIB
     Indication: Dermatitis atopic
     Dosage: 100 MG, DAILY

REACTIONS (4)
  - Syncope [Unknown]
  - Dizziness [Unknown]
  - Mobility decreased [Unknown]
  - Hypoaesthesia [Unknown]
